FAERS Safety Report 11860831 (Version 3)
Quarter: 2016Q1

REPORT INFORMATION
  Report Type: Report from Study
  Country: US (occurrence: US)
  Receive Date: 20151222
  Receipt Date: 20160203
  Transmission Date: 20160526
  Serious: Yes (Hospitalization, Other)
  Sender: FDA-Public Use
  Company Number: US-ARIAD PHARMACEUTICALS, INC-2015US005484

PATIENT
  Age: 29 Year
  Sex: Female

DRUGS (2)
  1. ICLUSIG [Suspect]
     Active Substance: PONATINIB
     Dosage: 45 MG, QD
     Route: 048
  2. ICLUSIG [Suspect]
     Active Substance: PONATINIB
     Indication: ACUTE LYMPHOCYTIC LEUKAEMIA
     Dosage: 45 MG, QD
     Route: 048
     Dates: start: 20141114

REACTIONS (28)
  - Rotator cuff syndrome [Unknown]
  - Drug ineffective [Unknown]
  - Neuropathy peripheral [Unknown]
  - Asthenia [Unknown]
  - Dizziness [Unknown]
  - Stem cell transplant [Unknown]
  - Gait disturbance [Unknown]
  - Hypertension [Unknown]
  - Pain in extremity [Unknown]
  - Depression [Unknown]
  - Tachycardia [Unknown]
  - Clostridium difficile colitis [Unknown]
  - Jugular vein thrombosis [Unknown]
  - Musculoskeletal pain [Unknown]
  - Device related infection [Unknown]
  - Skin ulcer [Unknown]
  - Infection [Unknown]
  - Decreased activity [Unknown]
  - Blood cortisol decreased [Unknown]
  - Eye disorder [Unknown]
  - Dyspepsia [Unknown]
  - Fatigue [Unknown]
  - Lethargy [Unknown]
  - Orthostatic hypotension [Unknown]
  - Pancytopenia [Unknown]
  - Embolism venous [Unknown]
  - Conjunctival pallor [Unknown]
  - Dyspnoea [Unknown]

NARRATIVE: CASE EVENT DATE: 20151229
